FAERS Safety Report 8081951 (Version 3)
Quarter: 2013Q4

REPORT INFORMATION
  Report Type: Spontaneous
  Country: US (occurrence: US)
  Receive Date: 20110809
  Receipt Date: 20131003
  Transmission Date: 20140711
  Serious: Yes (Hospitalization)
  Sender: FDA-Public Use
  Company Number: US-ELI_LILLY_AND_COMPANY-US201107007611

PATIENT
  Age: 11 Year
  Sex: Male
  Weight: 43.9 kg

DRUGS (2)
  1. STRATTERA [Suspect]
     Indication: ATTENTION DEFICIT/HYPERACTIVITY DISORDER
     Dosage: 40 MG, QD
     Dates: end: 2011
  2. STRATTERA [Suspect]
     Dosage: 1 DF, UNK
     Dates: start: 2011, end: 20130920

REACTIONS (1)
  - Proteinuria [Recovering/Resolving]
